FAERS Safety Report 8008408-2 (Version None)
Quarter: 2011Q4

REPORT INFORMATION
  Report Type: 
  Country: None (occurrence: None)
  Receive Date: 20111227
  Receipt Date: 20111219
  Transmission Date: 20120403
  Serious: Yes (Death)
  Sender: FDA-Public Use
  Company Number: ZA-ROCHE-1024758

PATIENT
  Sex: Male

DRUGS (1)
  1. MIRCERA [Suspect]
     Indication: PRODUCT USED FOR UNKNOWN INDICATION

REACTIONS (1)
  - RENAL FAILURE CHRONIC [None]
